FAERS Safety Report 9688587 (Version 1)
Quarter: 2013Q4

REPORT INFORMATION
  Report Type: Spontaneous
  Country: US (occurrence: US)
  Receive Date: 20131114
  Receipt Date: 20131114
  Transmission Date: 20140711
  Serious: Yes (Other)
  Sender: FDA-Public Use
  Company Number: US-WATSON-2013-20287

PATIENT
  Sex: Male

DRUGS (6)
  1. RAPAFLO (WATSON LABORATORIES) [Suspect]
     Indication: PROSTATOMEGALY
     Dosage: 1 DF, SINGLE
     Route: 048
     Dates: start: 201302, end: 201302
  2. LISINOPRIL + HIDROCLOROTIAZIDA [Concomitant]
     Indication: BLOOD PRESSURE
     Dosage: UNK
     Route: 048
  3. PAXIL [Concomitant]
     Indication: OBSESSIVE-COMPULSIVE DISORDER
  4. CLONAZEPAM [Concomitant]
     Indication: ANXIETY
     Dosage: 3 X DAILY PO
     Route: 048
  5. PERCOCET                           /00446701/ [Concomitant]
     Indication: PAIN
     Dosage: 1/2 TABLET 3X/ DAY
     Route: 048
  6. NEURONTIN [Concomitant]
     Indication: NEURALGIA
     Dosage: 1 CAPSULE IN AM, PM AND AT NIGHT BEFORE SLEEP
     Route: 048

REACTIONS (3)
  - Loss of consciousness [Recovered/Resolved]
  - Erectile dysfunction [Not Recovered/Not Resolved]
  - Expired drug administered [Unknown]
